FAERS Safety Report 15732797 (Version 1)
Quarter: 2018Q4

REPORT INFORMATION
  Report Type: Spontaneous
  Country: CA (occurrence: CA)
  Receive Date: 20181217
  Receipt Date: 20181217
  Transmission Date: 20190205
  Serious: Yes (Other)
  Sender: FDA-Public Use
  Company Number: CA-ALEXION PHARMACEUTICALS INC.-A201816376

PATIENT
  Sex: Male

DRUGS (1)
  1. SOLIRIS [Suspect]
     Active Substance: ECULIZUMAB
     Indication: ATYPICAL HAEMOLYTIC URAEMIC SYNDROME
     Dosage: 1500 MG, Q2W
     Route: 042

REACTIONS (5)
  - Drug ineffective [Unknown]
  - Uveitis [Unknown]
  - Incorrect dose administered [Unknown]
  - Proteinuria [Unknown]
  - Overweight [Unknown]
